FAERS Safety Report 5757832-7 (Version None)
Quarter: 2008Q2

REPORT INFORMATION
  Report Type: 
  Country: None (occurrence: None)
  Receive Date: 20080603
  Receipt Date: 20080527
  Transmission Date: 20081010
  Serious: Yes (Hospitalization)
  Sender: FDA-Public Use
  Company Number: PHHO2008IT03263

PATIENT
  Sex: Male
  Weight: 72.8 kg

DRUGS (3)
  1. CERTICAN [Suspect]
     Indication: RENAL TRANSPLANT
     Dosage: 1.25 / DAY
     Route: 048
     Dates: start: 20080220
  2. CERTICAN [Suspect]
     Dosage: 3 MG, QD
  3. NEORAL [Suspect]
     Indication: RENAL TRANSPLANT
     Dosage: 200 MG, QD
     Dates: start: 20080220

REACTIONS (2)
  - HAEMORRHAGE [None]
  - WOUND DEHISCENCE [None]
